FAERS Safety Report 9669783 (Version 4)
Quarter: 2013Q4

REPORT INFORMATION
  Report Type: Spontaneous
  Country: IE (occurrence: None)
  Receive Date: 20130405
  Receipt Date: 20131018
  Transmission Date: 20140711
  Serious: Yes (Hospitalization, Other)
  Sender: FDA-Public Use
  Company Number: ACO_35096_2013

PATIENT
  Age: 62 Year
  Sex: Female

DRUGS (7)
  1. FAMPYRA [Suspect]
     Indication: MULTIPLE SCLEROSIS
     Route: 048
     Dates: start: 20130320, end: 20130321
  2. BACLOFEN (BACLOFEN) [Concomitant]
  3. DITROPAN XL (OXYBUTYNIN HYDROCHLORIDE) [Concomitant]
  4. SYMMETREL (AMANTADINE HYDROCHLORIDE) [Concomitant]
  5. AMITRIPTYLINE HCL (AMITRIPTYLINE HYDROCHLORIDE) [Concomitant]
  6. DESMOPRESSIN (DESMOPRESSIN ACETATE) [Concomitant]
  7. NAUDICELLE PLUS (OENOTHERA BIENNIS OIL, TOCOPHEROLS MIXED, TOCOPHERYL ACETATE) [Concomitant]

REACTIONS (9)
  - Hyporesponsive to stimuli [None]
  - Dizziness [None]
  - Nausea [None]
  - Memory impairment [None]
  - Electrocardiogram PR shortened [None]
  - Confusional state [None]
  - Unresponsive to stimuli [None]
  - Hyponatraemia [None]
  - Convulsion [None]
